FAERS Safety Report 13657270 (Version 1)
Quarter: 2017Q2

REPORT INFORMATION
  Report Type: Spontaneous
  Country: DE (occurrence: DE)
  Receive Date: 20170615
  Receipt Date: 20170615
  Transmission Date: 20170830
  Serious: No
  Sender: FDA-Public Use
  Company Number: DE-JNJFOC-20170612633

PATIENT

DRUGS (12)
  1. ETANERCEPT [Suspect]
     Active Substance: ETANERCEPT
     Indication: PSORIATIC ARTHROPATHY
     Dosage: INITIAL DOSE 25-50 MG BIWEEKLY/25 MG WEEKLY 12 WEEKS FOLLOWED BY BIWEEKLY 25 MG/WEEKLY 50 MG
     Route: 058
  2. ADALIMUMAB [Suspect]
     Active Substance: ADALIMUMAB
     Indication: PSORIASIS
     Dosage: EVERY OTHER WEEK AFTER AN INITIAL LOADING DOSE OF 80 MG
     Route: 058
  3. USTEKINUMAB [Suspect]
     Active Substance: USTEKINUMAB
     Indication: PSORIASIS
     Dosage: ADMINISTERED AT WEEKS 0, 4, AND 12, WEEKLY THEREAFTER AT WEIGHT ADAPTED DOSES OF 45 MG OR 90 MG
     Route: 058
  4. USTEKINUMAB [Suspect]
     Active Substance: USTEKINUMAB
     Indication: GUTTATE PSORIASIS
     Dosage: ADMINISTERED AT WEEKS 0, 4, AND 12, WEEKLY THEREAFTER AT WEIGHT ADAPTED DOSES OF 45 MG OR 90 MG
     Route: 058
  5. USTEKINUMAB [Suspect]
     Active Substance: USTEKINUMAB
     Indication: PUSTULAR PSORIASIS
     Dosage: ADMINISTERED AT WEEKS 0, 4, AND 12, WEEKLY THEREAFTER AT WEIGHT ADAPTED DOSES OF 45 MG OR 90 MG
     Route: 058
  6. ADALIMUMAB [Suspect]
     Active Substance: ADALIMUMAB
     Indication: PSORIATIC ARTHROPATHY
     Dosage: EVERY OTHER WEEK AFTER AN INITIAL LOADING DOSE OF 80 MG
     Route: 058
  7. ADALIMUMAB [Suspect]
     Active Substance: ADALIMUMAB
     Indication: PUSTULAR PSORIASIS
     Dosage: EVERY OTHER WEEK AFTER AN INITIAL LOADING DOSE OF 80 MG
     Route: 058
  8. ETANERCEPT [Suspect]
     Active Substance: ETANERCEPT
     Indication: GUTTATE PSORIASIS
     Dosage: INITIAL DOSE 25-50 MG BIWEEKLY/25 MG WEEKLY 12 WEEKS FOLLOWED BY BIWEEKLY 25 MG/WEEKLY 50 MG
     Route: 058
  9. ETANERCEPT [Suspect]
     Active Substance: ETANERCEPT
     Indication: PUSTULAR PSORIASIS
     Dosage: INITIAL DOSE 25-50 MG BIWEEKLY/25 MG WEEKLY 12 WEEKS FOLLOWED BY BIWEEKLY 25 MG/WEEKLY 50 MG
     Route: 058
  10. USTEKINUMAB [Suspect]
     Active Substance: USTEKINUMAB
     Indication: PSORIATIC ARTHROPATHY
     Dosage: ADMINISTERED AT WEEKS 0, 4, AND 12, WEEKLY THEREAFTER AT WEIGHT ADAPTED DOSES OF 45 MG OR 90 MG
     Route: 058
  11. ADALIMUMAB [Suspect]
     Active Substance: ADALIMUMAB
     Indication: GUTTATE PSORIASIS
     Dosage: EVERY OTHER WEEK AFTER AN INITIAL LOADING DOSE OF 80 MG
     Route: 058
  12. ETANERCEPT [Suspect]
     Active Substance: ETANERCEPT
     Indication: PSORIASIS
     Dosage: INITIAL DOSE 25-50 MG BIWEEKLY/25 MG WEEKLY 12 WEEKS FOLLOWED BY BIWEEKLY 25 MG/WEEKLY 50 MG
     Route: 058

REACTIONS (2)
  - Lymphocyte count increased [Unknown]
  - Gamma-glutamyltransferase increased [Recovering/Resolving]
